FAERS Safety Report 8816726 (Version 1)
Quarter: 2012Q4

REPORT INFORMATION
  Report Type: Spontaneous
  Country: US (occurrence: None)
  Receive Date: 20121001
  Receipt Date: 20121001
  Transmission Date: 20130627
  Serious: Yes (Hospitalization)
  Sender: FDA-Public Use
  Company Number: E2B_00000392

PATIENT
  Age: 74 Year
  Sex: Female
  Weight: 96.62 kg

DRUGS (6)
  1. TRAMADOL HYDROCHLORIDE [Suspect]
     Indication: PAIN
     Route: 048
     Dates: start: 20120910, end: 20120910
  2. LISINOPRIL [Concomitant]
  3. ATORVASTATIN (LIPITOR) [Concomitant]
  4. OMEPRAZOLE [Concomitant]
  5. LEVOTHYROXINE (LEVOXYL) [Concomitant]
  6. ATENOLOL [Concomitant]

REACTIONS (6)
  - Dizziness [None]
  - Vomiting [None]
  - Dyspnoea [None]
  - Chest pain [None]
  - Feeling hot [None]
  - Middle insomnia [None]
